FAERS Safety Report 6385027-5 (Version None)
Quarter: 2009Q4

REPORT INFORMATION
  Report Type: 
  Country: None (occurrence: None)
  Receive Date: 20091002
  Receipt Date: 20090928
  Transmission Date: 20100525
  Serious: Yes (Death, Other)
  Sender: FDA-Public Use
  Company Number: PHHY2009BR41767

PATIENT
  Sex: Male

DRUGS (1)
  1. FORASEQ [Suspect]
     Indication: EMPHYSEMA
     Dosage: 12/400 MCG, TWICE A DAY
     Dates: start: 20090201

REACTIONS (3)
  - EMPHYSEMA [None]
  - LUNG DISORDER [None]
  - LUNG NEOPLASM MALIGNANT [None]
